FAERS Safety Report 13670945 (Version 1)
Quarter: 2017Q2

REPORT INFORMATION
  Report Type: Other
  Country: CA (occurrence: CA)
  Receive Date: 20170620
  Receipt Date: 20170620
  Transmission Date: 20170830
  Serious: Yes (Other)
  Sender: FDA-Public Use
  Company Number: CA-APOTEX-2017AP013037

PATIENT
  Age: 47 Year
  Sex: Female

DRUGS (2)
  1. ACTEMRA [Suspect]
     Active Substance: TOCILIZUMAB
     Indication: RHEUMATOID ARTHRITIS
     Dosage: UNK
     Route: 065
  2. APO-METFORMIN - TAB 500MG [Suspect]
     Active Substance: METFORMIN HYDROCHLORIDE
     Indication: TYPE 2 DIABETES MELLITUS
     Dosage: 1 EVERY 1 DAY
     Route: 048

REACTIONS (5)
  - Influenza [Unknown]
  - Type 2 diabetes mellitus [Unknown]
  - Diarrhoea [Unknown]
  - Lower respiratory tract infection [Unknown]
  - Pneumonia [Unknown]
